FAERS Safety Report 18257182 (Version 1)
Quarter: 2020Q3

REPORT INFORMATION
  Report Type: Spontaneous
  Country: US (occurrence: US)
  Receive Date: 20200911
  Receipt Date: 20200911
  Transmission Date: 20201103
  Serious: No
  Sender: FDA-Public Use
  Company Number: None

PATIENT
  Age: 48 Year
  Sex: Male
  Weight: 100 kg

DRUGS (2)
  1. REMDESIVIR (EUA) (REMDESIVIR (EUA)) [Suspect]
     Active Substance: REMDESIVIR
     Indication: COVID-19
  2. REMDESIVIR (EUA) (REMDESIVIR (EUA)) [Suspect]
     Active Substance: REMDESIVIR
     Indication: UPPER RESPIRATORY TRACT INFECTION
     Route: 042
     Dates: start: 20200723, end: 20200727

REACTIONS (2)
  - Aspartate aminotransferase increased [None]
  - Alanine aminotransferase increased [None]

NARRATIVE: CASE EVENT DATE: 20200728
